FAERS Safety Report 17094762 (Version 1)
Quarter: 2019Q4

REPORT INFORMATION
  Report Type: Spontaneous
  Country: US (occurrence: US)
  Receive Date: 20191130
  Receipt Date: 20191130
  Transmission Date: 20200122
  Serious: No
  Sender: FDA-Public Use
  Company Number: US-SHIRE-US201941284

PATIENT
  Sex: Female

DRUGS (1)
  1. MOTEGRITY [Suspect]
     Active Substance: PRUCALOPRIDE SUCCINATE
     Indication: PRODUCT USED FOR UNKNOWN INDICATION
     Dosage: 1 DOSAGE FORM, 1X/DAY:QD
     Route: 048
     Dates: start: 20191121, end: 20191122

REACTIONS (9)
  - Obsessive thoughts [Unknown]
  - Nightmare [Unknown]
  - Abdominal pain [Unknown]
  - Nausea [Unknown]
  - Vision blurred [Unknown]
  - Diarrhoea [Unknown]
  - Headache [Unknown]
  - Dizziness [Unknown]
  - Back pain [Unknown]

NARRATIVE: CASE EVENT DATE: 20191122
